FAERS Safety Report 6245001-6 (Version None)
Quarter: 2009Q2

REPORT INFORMATION
  Report Type: 
  Country: None (occurrence: None)
  Receive Date: 20090623
  Receipt Date: 20090623
  Transmission Date: 20091009
  Serious: Yes (Hospitalization)
  Sender: FDA-Public Use
  Company Number: None

PATIENT
  Age: 63 Year
  Sex: Female
  Weight: 101.4 kg

DRUGS (13)
  1. ABRAXANE [Suspect]
     Indication: BREAST CANCER METASTATIC
     Dosage: 100 MG/M2 WEEKLY IV DRIP
     Route: 041
     Dates: start: 20090617, end: 20090617
  2. TYLENOL (CAPLET) [Concomitant]
  3. CRESTOR [Concomitant]
  4. GABAPENTIN [Concomitant]
  5. LASIX [Concomitant]
  6. LOTENSIN [Concomitant]
  7. OXYBUTYNIN CHLORIDE [Concomitant]
  8. TRICOR [Concomitant]
  9. URSO FORTE [Concomitant]
  10. ASPIRIN [Concomitant]
  11. BIOTIN [Concomitant]
  12. NASONEX [Concomitant]
  13. CLARITIN [Concomitant]

REACTIONS (2)
  - CELLULITIS [None]
  - FOREIGN BODY TRAUMA [None]
